FAERS Safety Report 7379989-7 (Version None)
Quarter: 2011Q1

REPORT INFORMATION
  Report Type: 
  Country: None (occurrence: None)
  Receive Date: 20110329
  Receipt Date: 20110325
  Transmission Date: 20110831
  Serious: Yes (Death, Other)
  Sender: FDA-Public Use
  Company Number: PHHY2010US65265

PATIENT
  Sex: Male
  Weight: 23 kg

DRUGS (3)
  1. PLATELETS [Concomitant]
  2. EXJADE [Suspect]
     Indication: APLASTIC ANAEMIA
     Dosage: 750 MG, QD
     Route: 048
     Dates: start: 20070315, end: 20100901
  3. RED BLOOD CELLS [Concomitant]

REACTIONS (2)
  - ACUTE MYELOID LEUKAEMIA [None]
  - DEATH [None]
